FAERS Safety Report 8734546 (Version 2)
Quarter: 2013Q4

REPORT INFORMATION
  Report Type: Spontaneous
  Country: US (occurrence: US)
  Receive Date: 20120821
  Receipt Date: 20131031
  Transmission Date: 20140711
  Serious: No
  Sender: FDA-Public Use
  Company Number: US-009507513-2012SP027118

PATIENT
  Age: 10 Year
  Sex: Male
  Weight: 29.94 kg

DRUGS (2)
  1. CLARITIN KIDS [Suspect]
     Indication: SEASONAL ALLERGY
     Dosage: 5 MG, QD
     Route: 048
     Dates: start: 201104
  2. CLARITIN KIDS [Suspect]
     Indication: MEDICAL OBSERVATION

REACTIONS (1)
  - Dysgeusia [Unknown]
